FAERS Safety Report 9468606 (Version 2)
Quarter: 2013Q3

REPORT INFORMATION
  Report Type: Spontaneous
  Country: GB (occurrence: GB)
  Receive Date: 20130821
  Receipt Date: 20130916
  Transmission Date: 20140515
  Serious: Yes (Life-Threatening, Other)
  Sender: FDA-Public Use
  Company Number: GB-TEVA-426352ISR

PATIENT
  Age: 83 Year
  Sex: Female
  Weight: 82 kg

DRUGS (2)
  1. GLIMEPIRIDE [Suspect]
     Indication: TYPE 2 DIABETES MELLITUS
     Dosage: 4 MILLIGRAM DAILY;
     Route: 048
     Dates: start: 2000
  2. SITAGLIPTIN [Concomitant]
     Dosage: 100 MICROGRAM DAILY;
     Route: 048
     Dates: start: 201105

REACTIONS (1)
  - Bladder transitional cell carcinoma [Not Recovered/Not Resolved]
